FAERS Safety Report 24044676 (Version 1)
Quarter: 2024Q3

REPORT INFORMATION
  Report Type: Spontaneous
  Country: US (occurrence: US)
  Receive Date: 20240703
  Receipt Date: 20240703
  Transmission Date: 20241016
  Serious: Yes (Hospitalization, Other)
  Sender: PROCTER AND GAMBLE
  Company Number: US-PROCTER+GAMBLE-GS24071459

PATIENT
  Age: 18 Year
  Sex: Male

DRUGS (7)
  1. VICKS NYQUIL COLD AND FLU NIGHTTIME RELIEF [Suspect]
     Active Substance: ACETAMINOPHEN\DEXTROMETHORPHAN HYDROBROMIDE\DOXYLAMINE SUCCINATE
     Dosage: SWIG, 1 ONLY
     Route: 048
     Dates: start: 20240419, end: 20240419
  2. UNSPECIFIED INGREDIENT [Suspect]
     Active Substance: UNSPECIFIED INGREDIENT
     Dosage: UNKNOWN AMOUNT
     Route: 048
     Dates: start: 20240419, end: 20240419
  3. TYLENOL [Suspect]
     Active Substance: ACETAMINOPHEN
     Dosage: 100, 500 MG TABLETS; FULL BOTTLE,1 ONLY
     Route: 048
     Dates: start: 20240419, end: 20240419
  4. IBUPROFEN [Suspect]
     Active Substance: IBUPROFEN
     Dosage: 1/4 A BOTTLE OF 200 MG TABLETS
     Route: 048
     Dates: start: 20240419, end: 20240419
  5. UNSPECIFIED INGREDIENT [Suspect]
     Active Substance: UNSPECIFIED INGREDIENT
     Dosage: UNKNOWN AMOUNT
     Route: 048
     Dates: start: 20240419, end: 20240419
  6. UNSPECIFIED INGREDIENT [Suspect]
     Active Substance: UNSPECIFIED INGREDIENT
     Dosage: SMALL AMOUNT; BIT INTO THE DISHWASHER CAPSULE
     Route: 048
     Dates: start: 20240419, end: 20240419
  7. NAPROXEN [Suspect]
     Active Substance: NAPROXEN
     Dosage: UNKNOWN AMOUNT
     Route: 048
     Dates: start: 20240419, end: 20240419

REACTIONS (44)
  - Suicide attempt [Unknown]
  - Exposure via ingestion [Unknown]
  - Intentional product use issue [Unknown]
  - Incorrect route of product administration [Unknown]
  - Vomiting [Recovering/Resolving]
  - Drug abuse [Unknown]
  - Oesophagitis chemical [Unknown]
  - Thinking abnormal [Unknown]
  - Somnolence [Unknown]
  - Anxiety [Unknown]
  - Agitation [Unknown]
  - Abdominal pain upper [Recovered/Resolved]
  - Throat irritation [Not Recovered/Not Resolved]
  - Mydriasis [Unknown]
  - Metabolic acidosis [Recovered/Resolved]
  - Nausea [Not Recovered/Not Resolved]
  - Dry mouth [Not Recovered/Not Resolved]
  - Urticaria [Recovering/Resolving]
  - Discomfort [Not Recovered/Not Resolved]
  - Oedema mucosal [Unknown]
  - Mucosal hyperaemia [Unknown]
  - Gastritis [Unknown]
  - Gastric mucosa erythema [Unknown]
  - Gastrointestinal disorder [Unknown]
  - Contusion [Unknown]
  - Lethargy [Unknown]
  - Respiratory alkalosis [Unknown]
  - Blood pressure systolic increased [Recovering/Resolving]
  - Blood lactic acid increased [Recovered/Resolved]
  - Blood pH increased [Unknown]
  - Blood bicarbonate decreased [Unknown]
  - PCO2 decreased [Recovering/Resolving]
  - Carbon dioxide decreased [Recovering/Resolving]
  - Anion gap increased [Recovering/Resolving]
  - Blood glucose increased [Unknown]
  - Blood bilirubin increased [Unknown]
  - Aspartate aminotransferase increased [Recovering/Resolving]
  - Alanine aminotransferase increased [Recovering/Resolving]
  - International normalised ratio increased [Recovering/Resolving]
  - Analgesic drug level increased [Recovered/Resolved]
  - Prothrombin time prolonged [Recovering/Resolving]
  - Blood pressure diastolic increased [Recovering/Resolving]
  - Speech disorder [Unknown]
  - Hypertension [Recovering/Resolving]

NARRATIVE: CASE EVENT DATE: 20240101
